FAERS Safety Report 4337177-2 (Version None)
Quarter: 2004Q1

REPORT INFORMATION
  Report Type: 
  Country: None (occurrence: None)
  Receive Date: 20040329
  Receipt Date: 20040217
  Transmission Date: 20041129
  Serious: No
  Sender: FDA-Public Use
  Company Number: USA040259595

PATIENT
  Age: 48 Year
  Sex: Female
  Weight: 68 kg

DRUGS (6)
  1. STRATTERA [Suspect]
     Indication: ATTENTION DEFICIT/HYPERACTIVITY DISORDER
     Dosage: 80 MG/DAY
     Dates: start: 20031201, end: 20040201
  2. WELLBUTRIN [Concomitant]
  3. PENTA-TRIAMTERENE HCTZ [Concomitant]
  4. ADVAIR DISKUS 100/50 [Concomitant]
  5. LORTAB [Concomitant]
  6. BLACK COHOSH [Concomitant]

REACTIONS (4)
  - DYSGEUSIA [None]
  - NAUSEA [None]
  - PAROSMIA [None]
  - UNEVALUABLE EVENT [None]
